FAERS Safety Report 4389215-9 (Version None)
Quarter: 2004Q2

REPORT INFORMATION
  Report Type: 
  Country: None (occurrence: None)
  Receive Date: 20040628
  Receipt Date: 20040520
  Transmission Date: 20050107
  Serious: Yes (Hospitalization)
  Sender: FDA-Public Use
  Company Number: 2001067376GB

PATIENT
  Age: 62 Year
  Sex: Female

DRUGS (5)
  1. CAMPTOSAR [Suspect]
     Indication: COLON CANCER
     Dosage: 306 MG, IV
     Route: 042
     Dates: start: 20010422, end: 20010712
  2. REFOLINON (CALCIUM FOLINATE) SOLUTION, STERILE [Suspect]
     Indication: COLON CANCER
     Dosage: 680 MG, IV
     Route: 042
     Dates: start: 20010422, end: 20010712
  3. FLUOROURACIL [Suspect]
     Indication: COLON CANCER
     Dosage: SEE IMAGE
     Route: 042
     Dates: start: 20010422, end: 20010712
  4. FLUOROURACIL [Suspect]
     Indication: COLON CANCER
     Dosage: SEE IMAGE
     Route: 042
     Dates: start: 20010422, end: 20010712
  5. . [Concomitant]

REACTIONS (2)
  - DYSPNOEA EXERTIONAL [None]
  - PULMONARY FIBROSIS [None]
